FAERS Safety Report 6517271-8 (Version None)
Quarter: 2009Q4

REPORT INFORMATION
  Report Type: 
  Country: None (occurrence: None)
  Receive Date: 20091223
  Receipt Date: 20091209
  Transmission Date: 20100525
  Serious: Yes (Hospitalization)
  Sender: FDA-Public Use
  Company Number: US-PFIZER INC-2009307464

PATIENT
  Sex: Male
  Weight: 106.58 kg

DRUGS (14)
  1. MISOPROSTOL, DICLOFENAC SODIUM [Suspect]
     Indication: OSTEOARTHRITIS
     Dosage: 50 MG, 2X/DAY
     Route: 048
     Dates: start: 20090206, end: 20090217
  2. INSULIN DETEMIR [Concomitant]
     Indication: DIABETES MELLITUS
     Dosage: 70 IU, UNK
     Route: 058
     Dates: start: 20060313
  3. TENORMIN [Concomitant]
     Dosage: 200 MG, UNK
     Route: 048
     Dates: start: 20060110
  4. LOVASTATIN [Concomitant]
     Dosage: 20 MG, UNK
     Dates: start: 20080527
  5. NAPROSYN [Concomitant]
     Dosage: 750 MG, UNK
     Dates: start: 20070327
  6. RANITIDINE [Concomitant]
     Dosage: 300 MG, UNK
     Dates: start: 20070327
  7. LEVITRA [Concomitant]
     Indication: ERECTILE DYSFUNCTION
     Dosage: 20 MG, AS NEEDED
     Dates: start: 20060313
  8. ATENOLOL [Concomitant]
     Dosage: 100 MG, 2X/DAY
     Route: 048
     Dates: start: 20090110
  9. SERTRALINE [Concomitant]
     Dosage: 100 MG, UNK
     Dates: start: 20040110
  10. LANTUS [Concomitant]
     Indication: DIABETES MELLITUS
     Dosage: UNK
     Dates: start: 20040110
  11. HUMALOG [Concomitant]
     Indication: DIABETES MELLITUS
     Dosage: AS NEEDED
     Dates: start: 20090220
  12. NORCO [Concomitant]
     Indication: PAIN
     Dosage: 5/325 MG
     Route: 048
     Dates: start: 20090420
  13. FAMOTIDINE [Concomitant]
     Dosage: UNK
     Dates: start: 20090420
  14. ZOLOFT [Concomitant]
     Indication: DEPRESSION
     Dosage: UNK
     Route: 048
     Dates: start: 20090421

REACTIONS (1)
  - ILEUS [None]
